FAERS Safety Report 17457384 (Version 1)
Quarter: 2020Q1

REPORT INFORMATION
  Report Type: Report from Study
  Country: None (occurrence: US)
  Receive Date: 20200225
  Receipt Date: 20200225
  Transmission Date: 20200409
  Serious: Yes (Other)
  Sender: FDA-Public Use
  Company Number: US-ABBVIE-20K-163-3221525-00

PATIENT
  Age: 42 Year
  Sex: Male

DRUGS (3)
  1. HUMIRA [Suspect]
     Active Substance: ADALIMUMAB
     Indication: COLITIS ULCERATIVE
     Route: 058
     Dates: start: 20191009
  2. HUMIRA [Suspect]
     Active Substance: ADALIMUMAB
     Route: 058
     Dates: start: 202001, end: 20200212
  3. HUMIRA [Suspect]
     Active Substance: ADALIMUMAB
     Route: 058
     Dates: start: 201911, end: 20200129

REACTIONS (11)
  - Procedural haemorrhage [Recovering/Resolving]
  - Haematochezia [Recovering/Resolving]
  - Back pain [Unknown]
  - Diarrhoea [Recovering/Resolving]
  - Mass [Unknown]
  - Gastroenteritis viral [Unknown]
  - Procedural hypertension [Recovering/Resolving]
  - Arthralgia [Unknown]
  - Intervertebral disc protrusion [Not Recovered/Not Resolved]
  - Rectal haemorrhage [Recovering/Resolving]
  - Sciatica [Unknown]

NARRATIVE: CASE EVENT DATE: 201910
